FAERS Safety Report 7701520-4 (Version None)
Quarter: 2011Q3

REPORT INFORMATION
  Report Type: 
  Country: None (occurrence: None)
  Receive Date: 20110822
  Receipt Date: 20110803
  Transmission Date: 20111222
  Serious: Yes (Hospitalization)
  Sender: FDA-Public Use
  Company Number: FR-MERCK-1108FRA00027

PATIENT
  Age: 42 Year
  Sex: Female
  Weight: 85 kg

DRUGS (7)
  1. COZAAR [Suspect]
     Route: 048
     Dates: end: 20101216
  2. DULOXETIME HYDROCHLORIDE [Suspect]
     Route: 048
     Dates: start: 20101216, end: 20110328
  3. ROSUVASTATIN CALCIUM [Suspect]
     Route: 048
     Dates: end: 20101216
  4. DULOXETINE HYDROCHLORIDE [Suspect]
     Route: 048
     Dates: end: 20101216
  5. METFORMIN HCL [Suspect]
     Route: 048
     Dates: end: 20101216
  6. SITAGLIPTIN PHOSPHATE [Suspect]
     Route: 048
     Dates: end: 20101216
  7. LEVOTHYROXINE SODIUM [Concomitant]
     Route: 048

REACTIONS (3)
  - PRE-ECLAMPSIA [None]
  - DIABETES MELLITUS INADEQUATE CONTROL [None]
  - MATERNAL EXPOSURE DURING PREGNANCY [None]
